FAERS Safety Report 13758677 (Version 3)
Quarter: 2017Q4

REPORT INFORMATION
  Report Type: Spontaneous
  Country: US (occurrence: US)
  Receive Date: 20170717
  Receipt Date: 20171113
  Transmission Date: 20180320
  Serious: Yes (Hospitalization)
  Sender: FDA-Public Use
  Company Number: US-BIOGEN-2017BI00416965

PATIENT
  Age: 55 Year
  Sex: Female

DRUGS (1)
  1. PLEGRIDY [Suspect]
     Active Substance: PEGINTERFERON BETA-1A
     Indication: MULTIPLE SCLEROSIS
     Route: 065
     Dates: start: 20151113

REACTIONS (4)
  - Back pain [Unknown]
  - Memory impairment [Unknown]
  - Accident [Not Recovered/Not Resolved]
  - Concussion [Not Recovered/Not Resolved]

NARRATIVE: CASE EVENT DATE: 20170530
